FAERS Safety Report 16611135 (Version 1)
Quarter: 2019Q3

REPORT INFORMATION
  Report Type: Report from Study
  Country: RO (occurrence: RO)
  Receive Date: 20190722
  Receipt Date: 20190722
  Transmission Date: 20191004
  Serious: Yes (Death)
  Sender: FDA-Public Use
  Company Number: RO-AMREGENT-20191555

PATIENT
  Age: 73 Year
  Sex: Male
  Weight: 127.1 kg

DRUGS (9)
  1. LERCANIDIPINA [Concomitant]
     Active Substance: LERCANIDIPINE
     Dosage: 20 MG , 1 IN 1D
     Route: 048
     Dates: start: 20190110, end: 20190114
  2. CARVEDILOL. [Concomitant]
     Active Substance: CARVEDILOL
     Dosage: 6.25 MG (3.125 MG ,2  IN 1D)
     Route: 048
     Dates: start: 20180118
  3. FUROSEMID [Concomitant]
     Active Substance: FUROSEMIDE
     Dosage: 40 MG , 1 IN 1 D
     Route: 042
     Dates: start: 20190108, end: 20190108
  4. FERINJECT [Suspect]
     Active Substance: FERRIC CARBOXYMALTOSE
     Dosage: 10 ML
     Route: 040
     Dates: start: 20190118, end: 20190118
  5. DIGOXINUM [Concomitant]
     Dosage: 0.25 MG, 4 IN 1 WK
     Route: 048
     Dates: start: 20190118
  6. THROMBOSTOP [Concomitant]
     Dosage: 2 MG, (1 IN 1D)
     Route: 048
     Dates: start: 20190115
  7. CANDESARTAN. [Concomitant]
     Active Substance: CANDESARTAN
     Dosage: 16 MG, 1 IN 1D
     Route: 048
     Dates: start: 20190109, end: 20190109
  8. SPIRONOLACTONA [Concomitant]
     Active Substance: SPIRONOLACTONE
     Dosage: 25 MG , 1 IN 1 D
     Route: 048
     Dates: start: 20190108
  9. ACID ACETYLSALICYCLIC [Concomitant]
     Dosage: 100 MG, 1 IN 1D
     Route: 048
     Dates: start: 20190108, end: 20190114

REACTIONS (1)
  - Pulmonary embolism [Fatal]

NARRATIVE: CASE EVENT DATE: 20190618
